FAERS Safety Report 16925396 (Version 1)
Quarter: 2019Q4

REPORT INFORMATION
  Report Type: Spontaneous
  Country: CN (occurrence: CN)
  Receive Date: 20191016
  Receipt Date: 20191016
  Transmission Date: 20200122
  Serious: Yes (Other)
  Sender: FDA-Public Use
  Company Number: CN-GLAXOSMITHKLINE-CN2019APC183623

PATIENT

DRUGS (1)
  1. MUPIROCIN. [Suspect]
     Active Substance: MUPIROCIN
     Indication: WOUND INFECTION
     Dosage: 10 G, TID
     Route: 061
     Dates: start: 20191003, end: 20191003

REACTIONS (8)
  - Condition aggravated [Unknown]
  - Pruritus [Recovering/Resolving]
  - Application site swelling [Recovering/Resolving]
  - Erythema induratum [Recovering/Resolving]
  - Application site rash [Recovering/Resolving]
  - Rash erythematous [Recovering/Resolving]
  - Blister [Unknown]
  - Ulcer [Recovering/Resolving]

NARRATIVE: CASE EVENT DATE: 20191003
